FAERS Safety Report 6549302-3 (Version None)
Quarter: 2010Q1

REPORT INFORMATION
  Report Type: 
  Country: None (occurrence: None)
  Receive Date: 20100125
  Receipt Date: 20100112
  Transmission Date: 20100710
  Serious: Yes (Death)
  Sender: FDA-Public Use
  Company Number: US-JNJFOC-20091201080

PATIENT
  Sex: Male
  Weight: 64.41 kg

DRUGS (32)
  1. REMICADE [Suspect]
     Indication: COLITIS ULCERATIVE
     Route: 042
  2. REMICADE [Suspect]
     Route: 042
  3. REMICADE [Suspect]
     Route: 042
  4. REMICADE [Suspect]
     Route: 042
  5. REMICADE [Suspect]
     Route: 042
  6. REMICADE [Suspect]
     Route: 042
  7. REMICADE [Suspect]
     Route: 042
  8. REMICADE [Suspect]
     Route: 042
  9. REMICADE [Suspect]
     Route: 042
  10. REMICADE [Suspect]
     Route: 042
  11. REMICADE [Suspect]
     Route: 042
  12. REMICADE [Suspect]
     Route: 042
  13. REMICADE [Suspect]
     Route: 042
  14. REMICADE [Suspect]
     Route: 042
  15. REMICADE [Suspect]
     Route: 042
  16. ATENOLOL [Concomitant]
  17. FLOMAX [Concomitant]
  18. IRON [Concomitant]
  19. HYOSCYAMINE SULFATE [Concomitant]
  20. CRESTOR [Concomitant]
  21. PLAVIX [Concomitant]
  22. PREDNISONE [Concomitant]
  23. PROTONIX [Concomitant]
  24. COLAZAL [Concomitant]
  25. CANASA [Concomitant]
  26. LOMOTIL [Concomitant]
  27. AMBIEN [Concomitant]
  28. ATARAX [Concomitant]
  29. FOSAMAX [Concomitant]
  30. VITAMINS NOS [Concomitant]
  31. XIFAXAN [Concomitant]
  32. ASPIRIN [Concomitant]

REACTIONS (2)
  - CEREBROVASCULAR ACCIDENT [None]
  - RENAL CANCER [None]
